FAERS Safety Report 11258116 (Version 2)
Quarter: 2015Q3

REPORT INFORMATION
  Report Type: Spontaneous
  Country: TR (occurrence: TR)
  Receive Date: 20150710
  Receipt Date: 20150720
  Transmission Date: 20151125
  Serious: Yes (Other)
  Sender: FDA-Public Use
  Company Number: TR-AMGEN-TURSP2015049140

PATIENT
  Age: 38 Year
  Sex: Female

DRUGS (4)
  1. BRUFEN                             /00109201/ [Concomitant]
     Active Substance: IBUPROFEN
     Dosage: UNK
  2. ENBREL [Suspect]
     Active Substance: ETANERCEPT
     Indication: ANKYLOSING SPONDYLITIS
     Dosage: 50 MG, WEEKLY
     Route: 058
     Dates: start: 20150330
  3. OLIGOFER                           /00023501/ [Concomitant]
     Dosage: UNK
  4. ABPAX [Concomitant]
     Dosage: UNK

REACTIONS (4)
  - Injection site erythema [Recovered/Resolved]
  - Disease progression [Recovered/Resolved]
  - Injection site swelling [Recovered/Resolved]
  - Leiomyoma [Recovered/Resolved]

NARRATIVE: CASE EVENT DATE: 20150512
